FAERS Safety Report 4844232-7 (Version None)
Quarter: 2005Q4

REPORT INFORMATION
  Report Type: 
  Country: None (occurrence: None)
  Receive Date: 20051202
  Receipt Date: 20050826
  Transmission Date: 20060501
  Serious: Yes (Disabling)
  Sender: FDA-Public Use
  Company Number: ES-ABBOTT-05P-144-0309584-00

PATIENT
  Sex: Female
  Weight: 59 kg

DRUGS (8)
  1. HUMIRA [Suspect]
     Indication: RHEUMATOID ARTHRITIS
     Route: 058
     Dates: start: 20041026
  2. COMMERCIAL HUMIRA [Concomitant]
     Indication: RHEUMATOID ARTHRITIS
     Route: 058
     Dates: start: 20040718
  3. ALENDRONATE SODIUM [Concomitant]
     Indication: OSTEOPOROSIS
     Dates: start: 20050124
  4. DURAPATITE [Concomitant]
     Indication: OSTEOPOROSIS
     Dates: start: 20040108
  5. METHOTREXATE [Concomitant]
     Indication: RHEUMATOID ARTHRITIS
     Dates: start: 19990308
  6. ORCOXIB [Concomitant]
     Indication: RHEUMATOID ARTHRITIS
     Dates: start: 20050324
  7. DEFLAZACORT [Concomitant]
     Indication: RHEUMATOID ARTHRITIS
     Dates: start: 19981227
  8. DECLORPHIN [Concomitant]
     Indication: PROPHYLAXIS
     Dates: start: 19990308

REACTIONS (1)
  - NEURITIS [None]
